FAERS Safety Report 6860566-9 (Version None)
Quarter: 2010Q3

REPORT INFORMATION
  Report Type: 
  Country: None (occurrence: None)
  Receive Date: 20100720
  Receipt Date: 20100715
  Transmission Date: 20110219
  Serious: Yes (Hospitalization)
  Sender: FDA-Public Use
  Company Number: B0665516A

PATIENT
  Sex: Female

DRUGS (1)
  1. CLAMOXYL [Suspect]
     Indication: ACUTE SINUSITIS
     Dosage: 1UNIT PER DAY
     Route: 048
     Dates: start: 20091214, end: 20091214

REACTIONS (5)
  - ABDOMINAL PAIN [None]
  - ANAPHYLACTIC SHOCK [None]
  - DIARRHOEA [None]
  - HYPOTENSION [None]
  - SYNCOPE [None]
